FAERS Safety Report 8598637-1 (Version None)
Quarter: 2012Q3

REPORT INFORMATION
  Report Type: 
  Country: None (occurrence: None)
  Receive Date: 20120816
  Receipt Date: 20120808
  Transmission Date: 20120928
  Serious: Yes (Other)
  Sender: FDA-Public Use
  Company Number: IT-PFIZER INC-2012179796

PATIENT
  Age: 44 Year
  Sex: Female

DRUGS (1)
  1. CISPLATIN [Suspect]
     Indication: LUNG ADENOCARCINOMA
     Dosage: 100 MG, (1 MG/ML, CYCLICAL)
     Route: 042
     Dates: start: 20120723, end: 20120723

REACTIONS (5)
  - DYSPNOEA [None]
  - FACE OEDEMA [None]
  - LOCALISED OEDEMA [None]
  - TACHYCARDIA [None]
  - ERYTHEMA [None]
